FAERS Safety Report 9669222 (Version 3)
Quarter: 2014Q1

REPORT INFORMATION
  Report Type: Report from Study
  Country: JP (occurrence: JP)
  Receive Date: 20131105
  Receipt Date: 20140208
  Transmission Date: 20141002
  Serious: Yes (Hospitalization)
  Sender: FDA-Public Use
  Company Number: JP-MYLANLABS-2013S1024080

PATIENT
  Age: 65 Year
  Sex: Male
  Weight: 74.6 kg

DRUGS (14)
  1. EPIRUBICIN [Suspect]
     Indication: HEPATOCELLULAR CARCINOMA
     Route: 013
     Dates: start: 20130110, end: 20130110
  2. EPIRUBICIN [Suspect]
     Indication: HEPATOCELLULAR CARCINOMA
     Route: 013
     Dates: start: 20130701, end: 20130701
  3. EPIRUBICIN [Suspect]
     Indication: HEPATOCELLULAR CARCINOMA
     Route: 013
     Dates: start: 20130909, end: 20130909
  4. TSU-68 [Suspect]
     Indication: HEPATOCELLULAR CARCINOMA
     Route: 048
     Dates: start: 20130115, end: 20130309
  5. TSU-68 [Suspect]
     Indication: HEPATOCELLULAR CARCINOMA
     Route: 048
     Dates: start: 20130705, end: 20130907
  6. TSU-68 [Suspect]
     Indication: HEPATOCELLULAR CARCINOMA
     Route: 048
     Dates: start: 20130917, end: 20131007
  7. TSU-68 [Suspect]
     Indication: HEPATOCELLULAR CARCINOMA
     Route: 048
     Dates: start: 20131101
  8. TSU-68 [Suspect]
     Indication: HEPATOCELLULAR CARCINOMA
     Dates: start: 20131104
  9. LANTUS [Concomitant]
     Indication: DIABETES MELLITUS
     Route: 058
     Dates: start: 201201
  10. NOVORAPID [Concomitant]
     Indication: DIABETES MELLITUS
     Dosage: IN THE MORNING AND EVENING
     Route: 058
     Dates: start: 201211
  11. LAXOBERON [Concomitant]
     Indication: CONSTIPATION
     Route: 048
     Dates: start: 20130111
  12. URSODEOXYCHOLIC ACID [Concomitant]
     Indication: CHRONIC HEPATITIS C
     Route: 048
     Dates: start: 20130123
  13. LOXOPROFEN [Concomitant]
     Indication: HEADACHE
     Route: 048
     Dates: start: 20130326
  14. ROHIPNOL [Concomitant]
     Indication: INSOMNIA
     Route: 048
     Dates: start: 20130917

REACTIONS (6)
  - Oesophageal varices haemorrhage [Recovered/Resolved]
  - Portal vein thrombosis [Recovered/Resolved]
  - Liver abscess [Recovering/Resolving]
  - Haemobilia [Recovered/Resolved]
  - Biliary tract infection [Recovered/Resolved]
  - Hepatic failure [Recovered/Resolved]
